FAERS Safety Report 14067294 (Version 8)
Quarter: 2018Q1

REPORT INFORMATION
  Report Type: Report from Study
  Country: US (occurrence: US)
  Receive Date: 20171009
  Receipt Date: 20180126
  Transmission Date: 20180508
  Serious: Yes (Death, Hospitalization)
  Sender: FDA-Public Use
  Company Number: US-ACTELION-A-US2017-158953

PATIENT
  Age: 70 Year
  Sex: Female
  Weight: 61.22 kg

DRUGS (16)
  1. ADEMPAS [Concomitant]
     Active Substance: RIOCIGUAT
  2. ACYCLOVIR. [Concomitant]
     Active Substance: ACYCLOVIR
  3. OPSUMIT [Suspect]
     Active Substance: MACITENTAN
     Indication: PULMONARY ARTERIAL HYPERTENSION
     Dosage: 10 MG, QD
     Route: 048
     Dates: start: 20160107, end: 20171104
  4. SENNA [Concomitant]
     Active Substance: SENNA LEAF\SENNOSIDES\SENNOSIDES A AND B
  5. UPTRAVI [Suspect]
     Active Substance: SELEXIPAG
     Dosage: 1000 MCG, BID
     Route: 048
     Dates: start: 20170922
  6. UPTRAVI [Suspect]
     Active Substance: SELEXIPAG
     Dosage: 800 MCG, BID
     Route: 048
  7. XARELTO [Concomitant]
     Active Substance: RIVAROXABAN
     Dosage: UNK
     Dates: start: 20170821
  8. LORAZEPAM. [Concomitant]
     Active Substance: LORAZEPAM
     Dosage: UNK
     Dates: start: 20170425
  9. ALBUTEROL. [Concomitant]
     Active Substance: ALBUTEROL
  10. UPTRAVI [Suspect]
     Active Substance: SELEXIPAG
     Dosage: 600 MCG, BID
     Route: 048
  11. PROTONIX [Concomitant]
     Active Substance: PANTOPRAZOLE SODIUM
  12. BACTRIM [Concomitant]
     Active Substance: SULFAMETHOXAZOLE\TRIMETHOPRIM
  13. UPTRAVI [Suspect]
     Active Substance: SELEXIPAG
     Dosage: UNK
     Route: 048
     Dates: start: 20170814
  14. LASIX [Concomitant]
     Active Substance: FUROSEMIDE
     Dosage: UNK
     Dates: start: 2014
  15. CRESTOR [Concomitant]
     Active Substance: ROSUVASTATIN CALCIUM
     Dosage: UNK
     Dates: start: 2014
  16. UPTRAVI [Suspect]
     Active Substance: SELEXIPAG
     Indication: PULMONARY ARTERIAL HYPERTENSION
     Dosage: 1200 MCG, BID
     Route: 048
     Dates: start: 20171028, end: 20171104

REACTIONS (28)
  - Hypoxia [Fatal]
  - Oxygen saturation decreased [Fatal]
  - Dyspnoea [Unknown]
  - Amyloidosis [Unknown]
  - Malignant melanoma [Unknown]
  - Nausea [Not Recovered/Not Resolved]
  - Constipation [Unknown]
  - Loss of consciousness [Unknown]
  - Pulmonary oedema [Unknown]
  - Headache [Recovered/Resolved]
  - Pyrexia [Recovered/Resolved]
  - Pulmonary arterial hypertension [Fatal]
  - Hypotension [Unknown]
  - Fluid retention [Unknown]
  - Pain in jaw [Unknown]
  - Urinary retention [Unknown]
  - Anuria [Unknown]
  - Incontinence [Unknown]
  - Therapy non-responder [Unknown]
  - Brain natriuretic peptide increased [Not Recovered/Not Resolved]
  - Urinary tract infection [Unknown]
  - Tachycardia [Unknown]
  - Weight decreased [Unknown]
  - Malaise [Unknown]
  - Acute respiratory failure [Fatal]
  - Tachypnoea [Unknown]
  - Chondrocalcinosis pyrophosphate [Unknown]
  - Productive cough [Not Recovered/Not Resolved]

NARRATIVE: CASE EVENT DATE: 20170824
